FAERS Safety Report 5670150-0 (Version None)
Quarter: 2008Q1

REPORT INFORMATION
  Report Type: 
  Country: None (occurrence: None)
  Receive Date: 20080312
  Receipt Date: 20080225
  Transmission Date: 20080703
  Serious: Yes (Other)
  Sender: FDA-Public Use
  Company Number: 2008S1002951

PATIENT
  Age: 55 Year
  Sex: Female

DRUGS (3)
  1. ENDEP [Suspect]
     Indication: DEPRESSION
     Dosage: 20 MG; AT BEDTIME; ORAL
     Route: 048
     Dates: start: 20060101, end: 20080201
  2. LIPITOR [Concomitant]
  3. URAL [Concomitant]

REACTIONS (7)
  - DRY MOUTH [None]
  - DYSURIA [None]
  - EYE PAIN [None]
  - HALLUCINATION, AUDITORY [None]
  - INSOMNIA [None]
  - PARAESTHESIA [None]
  - SENSATION OF HEAVINESS [None]
